FAERS Safety Report 24978506 (Version 3)
Quarter: 2025Q1

REPORT INFORMATION
  Report Type: Report from Study
  Country: US (occurrence: US)
  Receive Date: 20250218
  Receipt Date: 20250224
  Transmission Date: 20250408
  Serious: No
  Sender: ROCHE
  Company Number: US-ROCHE-10000203667

PATIENT
  Sex: Female

DRUGS (4)
  1. PERTUZUMAB [Suspect]
     Active Substance: PERTUZUMAB
     Indication: Lymphoma
     Route: 065
  2. PERTUZUMAB [Suspect]
     Active Substance: PERTUZUMAB
     Indication: Breast cancer female
  3. PERTUZUMAB [Suspect]
     Active Substance: PERTUZUMAB
     Indication: Oestrogen receptor assay positive
  4. CINVANTI [Concomitant]
     Active Substance: APREPITANT

REACTIONS (2)
  - Off label use [Unknown]
  - No adverse event [Unknown]
